FAERS Safety Report 11368489 (Version 2)
Quarter: 2015Q3

REPORT INFORMATION
  Report Type: Spontaneous
  Country: ES (occurrence: ES)
  Receive Date: 20150811
  Receipt Date: 20150911
  Transmission Date: 20151125
  Serious: Yes (Hospitalization, Other)
  Sender: FDA-Public Use
  Company Number: ES-AMGEN-ESPSP2015064353

PATIENT
  Age: 36 Year
  Sex: Male

DRUGS (3)
  1. ENBREL [Suspect]
     Active Substance: ETANERCEPT
     Indication: ANKYLOSING SPONDYLITIS
     Dosage: 50 MG, WEEKLY
     Route: 058
     Dates: start: 20150527, end: 2015
  2. VIMOVO [Concomitant]
     Active Substance: ESOMEPRAZOLE MAGNESIUM\NAPROXEN
     Indication: PAIN
     Dosage: UNK, 1X/DAY
  3. YURELAX [Concomitant]
     Active Substance: CYCLOBENZAPRINE HYDROCHLORIDE
     Indication: ANKYLOSING SPONDYLITIS
     Dosage: 10 MG, AS NEEDED

REACTIONS (11)
  - Vomiting [Unknown]
  - Nephrolithiasis [Unknown]
  - Kidney infection [Unknown]
  - Ureteric obstruction [Unknown]
  - Anxiety [Unknown]
  - Discomfort [Unknown]
  - Renal colic [Unknown]
  - Renal failure [Unknown]
  - Condition aggravated [Unknown]
  - Respiratory failure [Unknown]
  - Herpes zoster [Recovering/Resolving]

NARRATIVE: CASE EVENT DATE: 2015
